FAERS Safety Report 16457997 (Version 1)
Quarter: 2019Q2

REPORT INFORMATION
  Report Type: Spontaneous
  Country: NL (occurrence: NL)
  Receive Date: 20190620
  Receipt Date: 20190620
  Transmission Date: 20190711
  Serious: Yes (Hospitalization)
  Sender: FDA-Public Use
  Company Number: NL-MYLANLABS-2019M1056861

PATIENT
  Age: 67 Year
  Sex: Female

DRUGS (4)
  1. CLOBAZAM. [Concomitant]
     Active Substance: CLOBAZAM
     Indication: SUPPORTIVE CARE
     Dosage: 1 MILLIGRAM, QD
     Route: 048
  2. TRACYDAL [Interacting]
     Active Substance: TRANYLCYPROMINE SULFATE
     Indication: DEPRESSION
     Dosage: 80 MILLIGRAM, QD (40 MG IN THE MORNING AND AFTERNOON)
     Route: 048
     Dates: start: 20170201, end: 20170201
  3. QUETIAPINE. [Suspect]
     Active Substance: QUETIAPINE
     Indication: SLEEP DISORDER
     Dosage: 200 MILLIGRAM, QD (IN THE EVENING)
     Route: 048
     Dates: start: 20170828
  4. OXYCODONE [Interacting]
     Active Substance: OXYCODONE
     Indication: PAIN
     Dosage: 20 MILLIGRAM, QD
     Dates: start: 20170828, end: 201709

REACTIONS (14)
  - Ankle fracture [Recovered/Resolved]
  - Dry mouth [Not Recovered/Not Resolved]
  - Contraindicated product administered [Recovered/Resolved]
  - Restlessness [Recovered/Resolved]
  - Drug ineffective [Recovered/Resolved]
  - Fall [Recovered/Resolved]
  - Overdose [Recovered/Resolved]
  - Depression [Recovered/Resolved]
  - Blood pressure fluctuation [Recovered/Resolved]
  - Middle ear effusion [Not Recovered/Not Resolved]
  - Nerve compression [Unknown]
  - Drug interaction [Recovered/Resolved]
  - Tremor [Recovered/Resolved]
  - Headache [Recovered/Resolved]

NARRATIVE: CASE EVENT DATE: 20170828
